FAERS Safety Report 12464429 (Version 2)
Quarter: 2016Q2

REPORT INFORMATION
  Report Type: Spontaneous
  Country: CA (occurrence: CA)
  Receive Date: 20160614
  Receipt Date: 20160614
  Transmission Date: 20160815
  Serious: Yes (Other)
  Sender: FDA-Public Use
  Company Number: CA-BAYER-2016-111564

PATIENT
  Age: 40 Year
  Sex: Female

DRUGS (2)
  1. MIRENA [Suspect]
     Active Substance: LEVONORGESTREL
     Indication: ENDOMETRIAL CANCER
     Dosage: 20 MCG/24HR, CONT
     Route: 015
     Dates: start: 201512
  2. MIRENA [Suspect]
     Active Substance: LEVONORGESTREL
     Indication: ENDOMETRIAL CANCER
     Dosage: 20 MCG/24HR, CONT
     Route: 015
     Dates: end: 201510

REACTIONS (6)
  - Device dislocation [None]
  - Device difficult to use [None]
  - Chest pain [None]
  - Abdominal pain [None]
  - Off label use [None]
  - Device dislocation [None]

NARRATIVE: CASE EVENT DATE: 20160606
